FAERS Safety Report 5390263-0 (Version None)
Quarter: 2007Q3

REPORT INFORMATION
  Report Type: 
  Country: None (occurrence: None)
  Receive Date: 20070716
  Receipt Date: 20061010
  Transmission Date: 20080115
  Serious: Yes (Hospitalization, Other)
  Sender: FDA-Public Use
  Company Number: MPS1-10594

PATIENT
  Age: 4 Year
  Sex: Male
  Weight: 17 kg

DRUGS (3)
  1. ALDURAZYME [Suspect]
     Indication: MUCOPOLYSACCHARIDOSIS I
     Dosage: 175 U/KG QWK IV
     Route: 042
  2. ALDURAZYME [Suspect]
     Indication: MUCOPOLYSACCHARIDOSIS I
     Dosage: 1.4 MG/KG QWK IV
     Route: 042
     Dates: start: 20040216
  3. ALDURAZYME [Suspect]
     Indication: MUCOPOLYSACCHARIDOSIS I
     Dosage: 175 U/KG 1XW IV
     Route: 042
     Dates: start: 20030221, end: 20040211

REACTIONS (4)
  - FACE OEDEMA [None]
  - INFUSION RELATED REACTION [None]
  - MALAISE [None]
  - URTICARIA [None]
